FAERS Safety Report 14883838 (Version 2)
Quarter: 2018Q2

REPORT INFORMATION
  Report Type: Spontaneous
  Country: US (occurrence: US)
  Receive Date: 20180511
  Receipt Date: 20180620
  Transmission Date: 20180711
  Serious: No
  Sender: FDA-Public Use
  Company Number: US-ASTRAZENECA-2018SE49186

PATIENT
  Sex: Female
  Weight: 89.4 kg

DRUGS (2)
  1. BYDUREON [Suspect]
     Active Substance: EXENATIDE
     Route: 058
  2. BYDUREON BCISE [Suspect]
     Active Substance: EXENATIDE
     Route: 058
     Dates: start: 20180205

REACTIONS (4)
  - Injection site mass [Recovering/Resolving]
  - Device leakage [Unknown]
  - Injection site pain [Recovering/Resolving]
  - Circumstance or information capable of leading to medication error [Unknown]
